FAERS Safety Report 14329646 (Version 3)
Quarter: 2018Q2

REPORT INFORMATION
  Report Type: Report from Study
  Country: US (occurrence: US)
  Receive Date: 20171227
  Receipt Date: 20180501
  Transmission Date: 20180711
  Serious: Yes (Other)
  Sender: FDA-Public Use
  Company Number: PHEH2017US041886

PATIENT
  Sex: Female

DRUGS (2)
  1. AFINITOR [Suspect]
     Active Substance: EVEROLIMUS
     Indication: PRODUCT USED FOR UNKNOWN INDICATION
     Dosage: UNK
     Route: 065
  2. AFINITOR [Suspect]
     Active Substance: EVEROLIMUS
     Dosage: 2.5 MG, QOD (EVERY OTHER DAY)
     Route: 065

REACTIONS (5)
  - Wolff-Parkinson-White syndrome [Unknown]
  - Viral infection [Unknown]
  - Haematoma [Unknown]
  - Vomiting [Unknown]
  - Drug level increased [Unknown]
